FAERS Safety Report 6118518-2 (Version None)
Quarter: 2009Q1

REPORT INFORMATION
  Report Type: 
  Country: None (occurrence: None)
  Receive Date: 20090314
  Receipt Date: 20090220
  Transmission Date: 20090719
  Serious: No
  Sender: FDA-Public Use
  Company Number: US-ABBOTT-09P-163-0558740-00

PATIENT
  Sex: Male
  Weight: 96.702 kg

DRUGS (4)
  1. HUMIRA [Suspect]
     Indication: PSORIASIS
     Dates: start: 20090101
  2. FINASTERIDE [Concomitant]
     Indication: ALOPECIA
  3. EFFEXOR [Concomitant]
     Indication: DEPRESSION
     Dosage: UNKNOWN
     Route: 048
  4. BUSPIRONE HCL [Concomitant]
     Indication: ANXIETY
     Dosage: 4-6 TIMES A DAY AS NEEDED
     Route: 048

REACTIONS (2)
  - INCORRECT DOSE ADMINISTERED [None]
  - INJECTION SITE PAIN [None]
